FAERS Safety Report 13903538 (Version 1)
Quarter: 2017Q3

REPORT INFORMATION
  Report Type: Spontaneous
  Country: US (occurrence: US)
  Receive Date: 20170824
  Receipt Date: 20170824
  Transmission Date: 20171127
  Serious: Yes (Hospitalization, Other)
  Sender: FDA-Public Use
  Company Number: US-PFIZER INC-2017365396

PATIENT
  Age: 70 Year
  Sex: Female
  Weight: 81.65 kg

DRUGS (11)
  1. RAPAMUNE [Suspect]
     Active Substance: SIROLIMUS
     Dosage: 3 MG, 1X/DAY
     Dates: start: 2006
  2. COREG [Concomitant]
     Active Substance: CARVEDILOL
     Indication: BLOOD PRESSURE MEASUREMENT
     Dosage: UNK, 1X/DAY
     Dates: start: 2015, end: 201610
  3. MYFORTIC [Concomitant]
     Active Substance: MYCOPHENOLATE SODIUM
     Dosage: UNK
  4. SIMVASTATIN. [Concomitant]
     Active Substance: SIMVASTATIN
     Indication: BLOOD CHOLESTEROL
     Dosage: 20 MG, 1X/DAY
  5. REQUIP [Concomitant]
     Active Substance: ROPINIROLE HYDROCHLORIDE
     Indication: RESTLESS LEGS SYNDROME
     Dosage: 1 MG, 1X/DAY (ONCE AT BED TIME)
  6. RAPAMUNE [Suspect]
     Active Substance: SIROLIMUS
     Indication: RENAL TRANSPLANT
     Dosage: 2 MG, UNK
     Dates: start: 200602, end: 2006
  7. NEORAL [Concomitant]
     Active Substance: CYCLOSPORINE
     Indication: RENAL TRANSPLANT
     Dosage: 75 MG, 2X/DAY(THREE TABLETS EVERY 12 HOURS)
     Dates: start: 201602, end: 201610
  8. ASPIRIN. [Concomitant]
     Active Substance: ASPIRIN
     Dosage: 81 MG, DAILY
  9. RAPAMUNE [Suspect]
     Active Substance: SIROLIMUS
     Dosage: 4 MG, UNK
  10. RAPAMUNE [Suspect]
     Active Substance: SIROLIMUS
     Dosage: 5 MG, UNK
  11. PREDNISONE. [Suspect]
     Active Substance: PREDNISONE
     Indication: VISION BLURRED
     Dosage: 80 MG, 1X/DAY
     Dates: start: 201608, end: 201610

REACTIONS (3)
  - Scar [Unknown]
  - Pneumocystis jirovecii pneumonia [Recovered/Resolved]
  - Gait disturbance [Unknown]

NARRATIVE: CASE EVENT DATE: 201610
